FAERS Safety Report 21707830 (Version 1)
Quarter: 2022Q4

REPORT INFORMATION
  Report Type: Spontaneous
  Country: US (occurrence: US)
  Receive Date: 20221209
  Receipt Date: 20221209
  Transmission Date: 20230113
  Serious: No
  Sender: FDA-Public Use
  Company Number: US-PFIZER INC-PV202200120129

PATIENT
  Age: 61 Year
  Sex: Male

DRUGS (12)
  1. MEKTOVI [Suspect]
     Active Substance: BINIMETINIB
     Indication: Papillary thyroid cancer
     Dosage: 15 MG
     Route: 048
     Dates: start: 20220926, end: 20221006
  2. MEKTOVI [Suspect]
     Active Substance: BINIMETINIB
     Indication: Thyroid cancer
     Dosage: 45 MG, 2X/DAY (TAKE 3 TABLET BY MOUTH EVERY 12 (TWELVE) HOURS)
     Route: 048
  3. MEKTOVI [Suspect]
     Active Substance: BINIMETINIB
     Indication: Metastases to lung
  4. MEKTOVI [Suspect]
     Active Substance: BINIMETINIB
     Indication: Hypothyroidism
  5. MEKTOVI [Suspect]
     Active Substance: BINIMETINIB
     Indication: Pyrexia
  6. MEKTOVI [Suspect]
     Active Substance: BINIMETINIB
     Indication: Lung neoplasm malignant
  7. BRAFTOVI [Suspect]
     Active Substance: ENCORAFENIB
     Indication: Papillary thyroid cancer
     Dosage: 450 MG, DAILY (TAKE 6 CAPSULES;TAKE 225MG BY MOUTH TWICE DAILY)
     Route: 048
  8. BRAFTOVI [Suspect]
     Active Substance: ENCORAFENIB
     Indication: Thyroid cancer
     Dosage: 225 MG, 2X/DAY
     Route: 048
  9. BRAFTOVI [Suspect]
     Active Substance: ENCORAFENIB
     Indication: Lung neoplasm malignant
  10. BRAFTOVI [Suspect]
     Active Substance: ENCORAFENIB
     Indication: Metastases to lung
  11. BRAFTOVI [Suspect]
     Active Substance: ENCORAFENIB
     Indication: Pyrexia
  12. BRAFTOVI [Suspect]
     Active Substance: ENCORAFENIB
     Indication: Hypothyroidism

REACTIONS (6)
  - Neoplasm progression [Unknown]
  - Off label use [Unknown]
  - Weight decreased [Unknown]
  - Dyspnoea exertional [Unknown]
  - Constipation [Unknown]
  - Dysphonia [Unknown]

NARRATIVE: CASE EVENT DATE: 20220926
